FAERS Safety Report 5205565-8 (Version None)
Quarter: 2007Q1

REPORT INFORMATION
  Report Type: 
  Country: None (occurrence: None)
  Receive Date: 20070109
  Receipt Date: 20061115
  Transmission Date: 20070707
  Serious: No
  Sender: FDA-Public Use
  Company Number: HQWYE896117NOV06

PATIENT
  Age: 52 Year
  Sex: Female
  Weight: 68.1 kg

DRUGS (1)
  1. PREMPRO [Suspect]
     Indication: HOT FLUSH
     Dosage: 1 TABLET 1X PER 1 DAY ORAL
     Route: 048
     Dates: start: 20061101

REACTIONS (4)
  - DRUG INEFFECTIVE [None]
  - MUSCLE SPASMS [None]
  - SLEEP DISORDER [None]
  - TENDERNESS [None]
